FAERS Safety Report 18081755 (Version 2)
Quarter: 2020Q3

REPORT INFORMATION
  Report Type: Spontaneous
  Country: DE (occurrence: DE)
  Receive Date: 20200728
  Receipt Date: 20200730
  Transmission Date: 20201103
  Serious: Yes (Hospitalization)
  Sender: FDA-Public Use
  Company Number: DE-ROCHE-2603972

PATIENT
  Sex: Female

DRUGS (22)
  1. PREDNISOLON [Concomitant]
     Active Substance: PREDNISOLONE
  2. KAMISTAD [Concomitant]
  3. DECORTIN H [Concomitant]
     Active Substance: PREDNISOLONE
  4. CALCIUM SANDOZ [Concomitant]
     Active Substance: CALCIUM
  5. HEPARIN [Concomitant]
     Active Substance: HEPARIN SODIUM
  6. OLUMIANT [Concomitant]
     Active Substance: BARICITINIB
  7. PASPERTIN [Concomitant]
  8. ASPIRIN. [Concomitant]
     Active Substance: ASPIRIN
  9. PRAXITEN [Concomitant]
     Active Substance: OXAZEPAM
  10. MOVICOL [Concomitant]
     Active Substance: POLYETHYLENE GLYCOL 3350\POTASSIUM CHLORIDE\SODIUM BICARBONATE\SODIUM CHLORIDE
  11. METHOTREXATE. [Concomitant]
     Active Substance: METHOTREXATE
  12. SHINGRIX [Concomitant]
     Active Substance: RECOMBINANT VARICELLA ZOSTER VIRUS (VZV) GLYCOPROTEIN E
  13. HYLO GEL [Concomitant]
  14. SIMVASTATIN. [Concomitant]
     Active Substance: SIMVASTATIN
  15. COTRIMOXAZOL AL FORTE [Concomitant]
     Active Substance: SULFAMETHOXAZOLE\TRIMETHOPRIM
  16. NOVALGIN (METAMIZOLE SODIUM) [Concomitant]
     Active Substance: METAMIZOLE SODIUM
  17. ELIQUIS [Concomitant]
     Active Substance: APIXABAN
  18. ESOMEPRAZOL [Concomitant]
     Active Substance: ESOMEPRAZOLE
  19. TOLTERODINE [Concomitant]
     Active Substance: TOLTERODINE
  20. VOLTAREN RESINAT [Concomitant]
     Active Substance: DICLOFENAC
  21. TILIDINE [Concomitant]
     Active Substance: TILIDINE
  22. ROACTEMRA [Suspect]
     Active Substance: TOCILIZUMAB
     Indication: RHEUMATOID ARTHRITIS
     Dosage: 162 MG/0.9 ML
     Route: 058
     Dates: start: 20200323, end: 20200518

REACTIONS (6)
  - Rheumatoid factor increased [Unknown]
  - Platelet count decreased [Unknown]
  - Blood fibrinogen decreased [Unknown]
  - Haematoma [Unknown]
  - Skin discolouration [Not Recovered/Not Resolved]
  - Extremity necrosis [Not Recovered/Not Resolved]
